FAERS Safety Report 10386177 (Version 2)
Quarter: 2014Q3

REPORT INFORMATION
  Report Type: Spontaneous
  Country: JP (occurrence: JP)
  Receive Date: 20140814
  Receipt Date: 20140926
  Transmission Date: 20150326
  Serious: Yes (Other)
  Sender: FDA-Public Use
  Company Number: JP-ASTRAZENECA-2014SE59463

PATIENT
  Sex: Male

DRUGS (5)
  1. VANCOMYCIN [Suspect]
     Active Substance: VANCOMYCIN
     Indication: SEPSIS
     Dates: start: 20140704, end: 20140727
  2. AMBISOME [Suspect]
     Active Substance: AMPHOTERICIN B
     Indication: SEPSIS
     Route: 041
     Dates: start: 201407, end: 201408
  3. MEROPEN [Suspect]
     Active Substance: MEROPENEM
     Route: 041
     Dates: start: 20140704, end: 20140715
  4. VANCOMYCIN [Suspect]
     Active Substance: VANCOMYCIN
     Indication: PNEUMONIA
     Dates: start: 20140704, end: 20140727
  5. AMBISOME [Suspect]
     Active Substance: AMPHOTERICIN B
     Indication: PNEUMONIA
     Route: 041
     Dates: start: 201407, end: 201408

REACTIONS (2)
  - Pancytopenia [Not Recovered/Not Resolved]
  - Bone marrow failure [Not Recovered/Not Resolved]

NARRATIVE: CASE EVENT DATE: 20140730
